FAERS Safety Report 4371536-7 (Version None)
Quarter: 2004Q2

REPORT INFORMATION
  Report Type: 
  Country: None (occurrence: None)
  Receive Date: 20040601
  Receipt Date: 20040203
  Transmission Date: 20050107
  Serious: No
  Sender: FDA-Public Use
  Company Number: 701475

PATIENT
  Age: 65 Year
  Sex: Female
  Weight: 52.1637 kg

DRUGS (2)
  1. AMEVIVE [Suspect]
     Indication: PSORIASIS
     Dosage: 15 MG QW IM
     Route: 030
     Dates: start: 20031020, end: 20031020
  2. AMEVIVE [Suspect]
     Indication: PSORIASIS

REACTIONS (2)
  - CD4 LYMPHOCYTES DECREASED [None]
  - PSORIASIS [None]
